FAERS Safety Report 4892931-3 (Version None)
Quarter: 2005Q4

REPORT INFORMATION
  Report Type: 
  Country: None (occurrence: None)
  Receive Date: 20051223
  Receipt Date: 20050302
  Transmission Date: 20060501
  Serious: Yes (Other)
  Sender: FDA-Public Use
  Company Number: PHEH2005US02631

PATIENT
  Sex: Male

DRUGS (2)
  1. CLOZARIL [Suspect]
     Indication: SCHIZOPHRENIA
  2. LUVOX [Suspect]
     Indication: OBSESSIVE THOUGHTS
     Dates: start: 20020101

REACTIONS (2)
  - CONVULSION [None]
  - OBSESSIVE THOUGHTS [None]
